FAERS Safety Report 26083997 (Version 1)
Quarter: 2025Q4

REPORT INFORMATION
  Report Type: Report from Study
  Country: US (occurrence: US)
  Receive Date: 20251124
  Receipt Date: 20251124
  Transmission Date: 20260119
  Serious: Yes (Life-Threatening, Disabling, Other)
  Sender: NOVO NORDISK
  Company Number: US-NOVOPROD-1567911

PATIENT
  Sex: Male

DRUGS (3)
  1. OZEMPIC [Suspect]
     Active Substance: SEMAGLUTIDE
     Indication: Type 2 diabetes mellitus
     Dosage: 1 MG
     Route: 058
  2. OZEMPIC [Suspect]
     Active Substance: SEMAGLUTIDE
     Indication: Weight control
  3. OZEMPIC [Suspect]
     Active Substance: SEMAGLUTIDE
     Indication: Type 2 diabetes mellitus
     Dosage: 2 MG
     Route: 058

REACTIONS (8)
  - Weight decreased [Recovered/Resolved]
  - Disability [Unknown]
  - Metabolic dysfunction-associated steatohepatitis [Unknown]
  - Abdominal hernia [Unknown]
  - Nausea [Recovered/Resolved]
  - Memory impairment [Unknown]
  - Weight increased [Unknown]
  - Illness [Unknown]
